FAERS Safety Report 19155274 (Version 2)
Quarter: 2021Q2

REPORT INFORMATION
  Report Type: Spontaneous
  Country: US (occurrence: US)
  Receive Date: 20210419
  Receipt Date: 20210607
  Transmission Date: 20210717
  Serious: Yes (Other)
  Sender: FDA-Public Use
  Company Number: US-GLAXOSMITHKLINE-USCH2021019399

PATIENT
  Age: 51 Year
  Sex: Female

DRUGS (1)
  1. CITRUCEL CAPLETS [Suspect]
     Active Substance: METHYLCELLULOSES
     Indication: CONSTIPATION
     Dosage: UNK

REACTIONS (3)
  - Product complaint [Unknown]
  - Haemorrhage [Unknown]
  - Pain in extremity [Recovering/Resolving]
